FAERS Safety Report 14372481 (Version 7)
Quarter: 2019Q2

REPORT INFORMATION
  Report Type: Spontaneous
  Country: US (occurrence: US)
  Receive Date: 20180110
  Receipt Date: 20190606
  Transmission Date: 20190711
  Serious: Yes (Hospitalization, Disabling)
  Sender: FDA-Public Use
  Company Number: US-ACTELION-A-NJ2018-165507

PATIENT
  Sex: Female
  Weight: 74.83 kg

DRUGS (2)
  1. TRACLEER [Suspect]
     Active Substance: BOSENTAN
     Indication: PULMONARY HYPERTENSION
     Dosage: 62.5 MG, BID
     Route: 048
  2. TRACLEER [Suspect]
     Active Substance: BOSENTAN
     Dosage: 62.5 MG, QD
     Route: 048

REACTIONS (9)
  - Pain in extremity [Unknown]
  - Peripheral coldness [Unknown]
  - Ulcer [Unknown]
  - Malaise [Unknown]
  - Hand dermatitis [Unknown]
  - Cough [Unknown]
  - Memory impairment [Unknown]
  - Confusional state [Unknown]
  - Musculoskeletal disorder [Unknown]
